FAERS Safety Report 6650154-1 (Version None)
Quarter: 2010Q1

REPORT INFORMATION
  Report Type: 
  Country: None (occurrence: None)
  Receive Date: 20100325
  Receipt Date: 20100318
  Transmission Date: 20100710
  Serious: Yes (Other)
  Sender: FDA-Public Use
  Company Number: CO-ASTRAZENECA-2010SE11917

PATIENT
  Age: 14 Day
  Sex: Female

DRUGS (2)
  1. MERONEM [Suspect]
     Indication: SEPSIS
     Route: 042
     Dates: start: 20100127, end: 20100128
  2. AMPHOTERICIN B [Concomitant]
     Indication: SEPSIS
     Dosage: 1 MG/KG/DAILY
     Route: 042
     Dates: start: 20100127, end: 20100210

REACTIONS (2)
  - EYELID OEDEMA [None]
  - RASH GENERALISED [None]
